FAERS Safety Report 7914778-3 (Version None)
Quarter: 2011Q4

REPORT INFORMATION
  Report Type: 
  Country: None (occurrence: None)
  Receive Date: 20111115
  Receipt Date: 20111111
  Transmission Date: 20120403
  Serious: Yes (Death)
  Sender: FDA-Public Use
  Company Number: PHHY2011TH94707

PATIENT
  Sex: Male

DRUGS (2)
  1. GLEEVEC [Suspect]
     Indication: CHRONIC MYELOID LEUKAEMIA
     Dosage: 400 MG, UNK
     Dates: start: 20091204
  2. GLEEVEC [Suspect]
     Dosage: 300 MG, UNK
     Dates: start: 20110904, end: 20111013

REACTIONS (1)
  - LUNG NEOPLASM MALIGNANT [None]
